FAERS Safety Report 9258200 (Version 1)
Quarter: 2013Q2

REPORT INFORMATION
  Report Type: Report from Study
  Country: US (occurrence: US)
  Receive Date: 20130426
  Receipt Date: 20130426
  Transmission Date: 20140414
  Serious: Yes (Hospitalization, Other)
  Sender: FDA-Public Use
  Company Number: PHHO2009US09443

PATIENT
  Age: 49 Year
  Sex: Female
  Weight: 81.3 kg

DRUGS (7)
  1. ALISKIREN [Suspect]
     Indication: CARDIOVASCULAR DISORDER
     Dosage: 300 MG, UNK
     Route: 048
     Dates: start: 20080616, end: 20100114
  2. ALISKIREN [Suspect]
     Dosage: 300 MG, UNK
     Route: 048
     Dates: start: 20100130
  3. ALISKIREN [Suspect]
     Dosage: 300 MG, UNK
     Route: 048
     Dates: start: 20100408
  4. ALISKIREN [Suspect]
     Dosage: 300 MG, UNK
     Route: 048
     Dates: start: 20100601
  5. ALISKIREN [Suspect]
     Dosage: 300 MG, UNK
     Route: 048
     Dates: end: 20100904
  6. ALISKIREN [Suspect]
     Dosage: 300 MG, UNK
     Route: 048
     Dates: start: 20100914, end: 20101118
  7. ALISKIREN [Suspect]
     Dosage: 300 MG, UNK
     Route: 048
     Dates: start: 20101121

REACTIONS (29)
  - Transient ischaemic attack [Recovered/Resolved]
  - Renal failure chronic [Not Recovered/Not Resolved]
  - Diabetic nephropathy [Not Recovered/Not Resolved]
  - Asthma [Recovered/Resolved]
  - Type 2 diabetes mellitus [Unknown]
  - Renal impairment [Unknown]
  - Glomerular filtration rate abnormal [Not Recovered/Not Resolved]
  - Glycosylated haemoglobin increased [Not Recovered/Not Resolved]
  - Blood creatinine increased [Not Recovered/Not Resolved]
  - Dyspnoea [Recovering/Resolving]
  - Chest pain [Recovered/Resolved]
  - Chest discomfort [Recovered/Resolved]
  - Fluid overload [Recovered/Resolved]
  - Dyspnoea paroxysmal nocturnal [Recovered/Resolved]
  - Brain natriuretic peptide increased [Recovered/Resolved]
  - Staphylococcal sepsis [Recovered/Resolved]
  - Pyrexia [Recovered/Resolved]
  - Asthenia [Recovered/Resolved]
  - Malaise [Recovered/Resolved]
  - Nausea [Recovered/Resolved]
  - Vomiting [Recovered/Resolved]
  - Catheter site infection [Recovered/Resolved]
  - Pulmonary oedema [Unknown]
  - Cardiomegaly [Unknown]
  - Blood pressure increased [Unknown]
  - Hyperkalaemia [Recovered/Resolved]
  - Blister [Unknown]
  - Concomitant disease progression [Recovered/Resolved]
  - Disease progression [Not Recovered/Not Resolved]
